FAERS Safety Report 14778402 (Version 1)
Quarter: 2018Q2

REPORT INFORMATION
  Report Type: Spontaneous
  Country: US (occurrence: US)
  Receive Date: 20180419
  Receipt Date: 20180419
  Transmission Date: 20180711
  Serious: No
  Sender: FDA-Public Use
  Company Number: US-009507513-1803USA009322

PATIENT
  Age: 34 Year
  Sex: Female

DRUGS (1)
  1. TEMODAR [Suspect]
     Active Substance: TEMOZOLOMIDE
     Indication: MEDULLOBLASTOMA
     Dosage: UNK, 8 COURSES
     Route: 048

REACTIONS (1)
  - Off label use [Unknown]
